FAERS Safety Report 5119674-5 (Version None)
Quarter: 2006Q3

REPORT INFORMATION
  Report Type: 
  Country: None (occurrence: None)
  Receive Date: 20060929
  Receipt Date: 20060920
  Transmission Date: 20061208
  Serious: Yes (Disabling)
  Sender: FDA-Public Use
  Company Number: GXKR2006DE05873

PATIENT
  Age: 67 Year
  Sex: Female

DRUGS (1)
  1. CAPTOHEXAL COMP (NGX) (CAPTOPRIL,  HYDROCHLOROTHIAZIDE)TABLET [Suspect]
     Dosage: ORAL
     Route: 048
     Dates: start: 19970101, end: 20060101

REACTIONS (3)
  - DYSPNOEA [None]
  - PULMONARY FIBROSIS [None]
  - PULMONARY FUNCTION TEST DECREASED [None]
